FAERS Safety Report 7235915-2 (Version None)
Quarter: 2011Q1

REPORT INFORMATION
  Report Type: 
  Country: None (occurrence: None)
  Receive Date: 20110120
  Receipt Date: 20110112
  Transmission Date: 20110831
  Serious: Yes (Hospitalization)
  Sender: FDA-Public Use
  Company Number: A0782847A

PATIENT
  Age: 60 Year
  Sex: Male
  Weight: 136.8 kg

DRUGS (9)
  1. INSULIN [Concomitant]
  2. AMARYL [Concomitant]
  3. CELEBREX [Concomitant]
  4. ADVICOR [Concomitant]
  5. GEMFIBROZIL [Concomitant]
  6. LISINOPRIL [Concomitant]
  7. AVANDIA [Suspect]
     Indication: DIABETES MELLITUS
     Dosage: 8MG PER DAY
     Route: 048
     Dates: start: 20050201, end: 20070301
  8. AVANDAMET [Suspect]
     Indication: DIABETES MELLITUS
     Route: 048
     Dates: start: 20040401, end: 20050201
  9. TRIAMTERENE [Concomitant]

REACTIONS (4)
  - CARDIAC FAILURE CONGESTIVE [None]
  - CORONARY ARTERY DISEASE [None]
  - PLEURAL EFFUSION [None]
  - MYOCARDIAL INFARCTION [None]
